FAERS Safety Report 9354216 (Version 1)
Quarter: 2013Q2

REPORT INFORMATION
  Report Type: Spontaneous
  Country: DK (occurrence: DK)
  Receive Date: 20130618
  Receipt Date: 20130618
  Transmission Date: 20140414
  Serious: Yes (Hospitalization)
  Sender: FDA-Public Use
  Company Number: DK-B.I. PHARMACEUTICALS,INC./RIDGEFIELD-2013-SW-00315DB

PATIENT
  Age: 93 Year
  Sex: Female

DRUGS (4)
  1. PRADAXA [Suspect]
     Indication: ATRIAL FIBRILLATION
     Dosage: 220 MG
     Route: 048
     Dates: start: 20130512, end: 20130515
  2. AMLODIPIN ^ACTAVIS^ [Concomitant]
     Indication: HYPERTENSION
  3. KODEIN ^ALTERNOVA^ [Concomitant]
     Indication: PAIN
  4. PAMOL [Concomitant]
     Indication: PAIN

REACTIONS (3)
  - Dyspepsia [Recovered/Resolved]
  - Chest pain [Recovered/Resolved]
  - Throat irritation [Recovered/Resolved]
